FAERS Safety Report 6396557-4 (Version None)
Quarter: 2009Q4

REPORT INFORMATION
  Report Type: 
  Country: None (occurrence: None)
  Receive Date: 20091012
  Receipt Date: 20090930
  Transmission Date: 20100525
  Serious: Yes (Life-Threatening, Other)
  Sender: FDA-Public Use
  Company Number: AT-JNJFOC-20080405937

PATIENT

DRUGS (2)
  1. INFLIXIMAB [Suspect]
     Dosage: WEEK 21 , 11 WEEKS AFER 4TH INFUSION, FOR A TOTAL OF 10 MONTHS,  16 INFUSIONS
     Route: 042
  2. INFLIXIMAB [Suspect]
     Indication: SLE ARTHRITIS
     Dosage: WEEKS 0, 2, 6 AND 10, APPROXIMATELY 5MG/KG, 4.8 G
     Route: 042

REACTIONS (1)
  - B-CELL LYMPHOMA [None]
